FAERS Safety Report 21703706 (Version 3)
Quarter: 2025Q1

REPORT INFORMATION
  Report Type: Report from Study
  Country: BR (occurrence: BR)
  Receive Date: 20221209
  Receipt Date: 20250326
  Transmission Date: 20250409
  Serious: Yes (Other)
  Sender: CELLTRION
  Company Number: BR-CELLTRION INC.-2022BR020720

PATIENT

DRUGS (6)
  1. INFLIXIMAB-DYYB [Suspect]
     Active Substance: INFLIXIMAB-DYYB
     Indication: Crohn^s disease
     Dosage: 3 AMPOULES EVERY 4 WEEKS
     Route: 042
     Dates: start: 20221205
  2. INFLIXIMAB-DYYB [Suspect]
     Active Substance: INFLIXIMAB-DYYB
     Dosage: 3 AMPOULES EVERY 4 WEEKS
     Route: 042
     Dates: start: 202409
  3. IMURAN [Concomitant]
     Active Substance: AZATHIOPRINE
     Indication: Product used for unknown indication
     Route: 048
  4. SIMVASTATIN [Concomitant]
     Active Substance: SIMVASTATIN
     Indication: Product used for unknown indication
     Route: 048
  5. BENSERAZIDE\LEVODOPA [Concomitant]
     Active Substance: BENSERAZIDE\LEVODOPA
     Indication: Product used for unknown indication
     Route: 048
  6. LOSARTAN POTASSIUM [Concomitant]
     Active Substance: LOSARTAN POTASSIUM
     Indication: Product used for unknown indication
     Route: 048

REACTIONS (12)
  - Crohn^s disease [Unknown]
  - Cystocele [Unknown]
  - Post procedural urine leak [Unknown]
  - Blood pressure fluctuation [Unknown]
  - Hypovitaminosis [Unknown]
  - Alopecia [Unknown]
  - Somnolence [Unknown]
  - Product availability issue [Unknown]
  - Treatment delayed [Unknown]
  - Medication error [Unknown]
  - Therapy interrupted [Unknown]
  - Intentional product use issue [Unknown]

NARRATIVE: CASE EVENT DATE: 20241001
